FAERS Safety Report 5962702-5 (Version None)
Quarter: 2008Q4

REPORT INFORMATION
  Report Type: 
  Country: None (occurrence: None)
  Receive Date: 20081120
  Receipt Date: 20081106
  Transmission Date: 20090506
  Serious: Yes (Hospitalization)
  Sender: FDA-Public Use
  Company Number: 036360

PATIENT
  Age: 31 Year
  Sex: Female

DRUGS (1)
  1. ADDERALL(DEXTROAMPHETAMINE SACCHARATE, AMPHTEAMINE ASPARTATE DEXTROAMH [Suspect]
     Dosage: ORAL
     Route: 048

REACTIONS (3)
  - DRUG EXPOSURE DURING PREGNANCY [None]
  - PREGNANCY [None]
  - SYNCOPE [None]
